FAERS Safety Report 23756595 (Version 1)
Quarter: 2024Q2

REPORT INFORMATION
  Report Type: Spontaneous
  Country: US (occurrence: None)
  Receive Date: 20240417
  Receipt Date: 20240417
  Transmission Date: 20240716
  Serious: Yes (Other)
  Sender: FDA-Public Use
  Company Number: None

PATIENT
  Sex: Female

DRUGS (2)
  1. REPATHA [Suspect]
     Active Substance: EVOLOCUMAB
     Indication: Hyperlipidaemia
     Dosage: 1 ML EVERY 2 WEEKS SUBCUTANEOUS?
     Route: 058
     Dates: start: 20230103
  2. REPATHA [Concomitant]
     Active Substance: EVOLOCUMAB
     Dates: start: 20230103

REACTIONS (3)
  - Injection site reaction [None]
  - Injection site pain [None]
  - Injection site bruising [None]
